FAERS Safety Report 8001568-9 (Version None)
Quarter: 2011Q4

REPORT INFORMATION
  Report Type: 
  Country: None (occurrence: None)
  Receive Date: 20111222
  Receipt Date: 20111219
  Transmission Date: 20120403
  Serious: Yes (Death)
  Sender: FDA-Public Use
  Company Number: US-PFIZER INC-2011308996

PATIENT
  Age: 53 Year
  Sex: Male

DRUGS (6)
  1. BUPROPION [Suspect]
  2. HYDROCHLOROTHIAZIDE [Suspect]
  3. ATORVASTATIN CALCIUM [Suspect]
  4. VENLAFAXINE HCL [Suspect]
  5. BISOPROLOL [Suspect]
  6. AMLODIPINE BESYLATE [Suspect]

REACTIONS (1)
  - COMPLETED SUICIDE [None]
